FAERS Safety Report 5000882-9 (Version None)
Quarter: 2006Q2

REPORT INFORMATION
  Report Type: 
  Country: None (occurrence: None)
  Receive Date: 20060512
  Receipt Date: 20050613
  Transmission Date: 20061013
  Serious: Yes (Other)
  Sender: FDA-Public Use
  Company Number: US-GLAXOSMITHKLINE-A0562423A

PATIENT
  Sex: Female

DRUGS (2)
  1. RELAFEN [Suspect]
     Indication: RHEUMATOID ARTHRITIS
     Dosage: 500MG TWICE PER DAY
     Route: 048
  2. NORVASC [Concomitant]

REACTIONS (1)
  - VISUAL ACUITY REDUCED [None]
